FAERS Safety Report 19896056 (Version 2)
Quarter: 2022Q4

REPORT INFORMATION
  Report Type: Spontaneous
  Country: US (occurrence: US)
  Receive Date: 20210929
  Receipt Date: 20221018
  Transmission Date: 20230113
  Serious: No
  Sender: FDA-Public Use
  Company Number: US-CELLTRION INC.-2021US008147

PATIENT

DRUGS (2)
  1. INFLECTRA [Suspect]
     Active Substance: INFLIXIMAB-DYYB
     Indication: Ankylosing spondylitis
     Dosage: 12TH INFUSION
  2. COVID-19 VACCINE [Concomitant]
     Dosage: 2ND COVID VACCINATION AT LEAST 2 WEEKS PRIOR

REACTIONS (3)
  - Dyspnoea [Unknown]
  - Erythema [Unknown]
  - Wheezing [Unknown]
